FAERS Safety Report 7056084-8 (Version None)
Quarter: 2010Q4

REPORT INFORMATION
  Report Type: 
  Country: None (occurrence: None)
  Receive Date: 20101021
  Receipt Date: 20101015
  Transmission Date: 20110411
  Serious: Yes (Congenital Anomaly)
  Sender: FDA-Public Use
  Company Number: GB-TEVA-252294ISR

PATIENT

DRUGS (11)
  1. ALENDRONIC ACID [Suspect]
     Indication: SYSTEMIC LUPUS ERYTHEMATOSUS
     Route: 064
  2. AZATHIOPRINE [Suspect]
     Indication: SYSTEMIC LUPUS ERYTHEMATOSUS
     Route: 064
     Dates: start: 20090309
  3. LACTULOSE [Suspect]
     Route: 064
     Dates: start: 20090309, end: 20090420
  4. PREDNISOLONE [Suspect]
     Route: 064
     Dates: start: 20090309
  5. CHLORHEXIDINE GLUCONATE [Suspect]
     Route: 064
     Dates: start: 20090309, end: 20090420
  6. HYDROXYCHLOROQUINE [Suspect]
     Indication: SYSTEMIC LUPUS ERYTHEMATOSUS
     Route: 064
     Dates: start: 20090318
  7. METHYLPREDNISOLONE [Suspect]
     Route: 064
  8. MUPIROCIN [Suspect]
     Route: 064
     Dates: start: 20090309, end: 20090420
  9. PARACETAMOL [Suspect]
     Route: 064
     Dates: start: 20090309, end: 20090420
  10. SENNA [Suspect]
     Route: 064
     Dates: start: 20090309, end: 20090420
  11. CITRIC ACID MONOHYDRATE AND CONCENTRATED ANISE WATER [Suspect]
     Route: 064
     Dates: start: 20090309, end: 20090420

REACTIONS (3)
  - CLEFT LIP AND PALATE [None]
  - MATERNAL CONDITION AFFECTING FOETUS [None]
  - TERATOGENICITY [None]
